FAERS Safety Report 24252448 (Version 1)
Quarter: 2024Q3

REPORT INFORMATION
  Report Type: Spontaneous
  Country: CA (occurrence: CA)
  Receive Date: 20240827
  Receipt Date: 20240827
  Transmission Date: 20241017
  Serious: Yes (Life-Threatening, Hospitalization, Other)
  Sender: AMGEN
  Company Number: CA-AMGEN-CANSP2023218655

PATIENT

DRUGS (6)
  1. ADALIMUMAB [Suspect]
     Active Substance: ADALIMUMAB
     Indication: Exposure during pregnancy
     Dosage: UNK
     Route: 064
  2. ADALIMUMAB [Suspect]
     Active Substance: ADALIMUMAB
     Indication: Maternal exposure during breast feeding
     Dosage: UNK
     Route: 063
  3. INFLIXIMAB [Suspect]
     Active Substance: INFLIXIMAB
     Indication: Exposure during pregnancy
     Dosage: UNK
     Route: 064
  4. INFLIXIMAB [Suspect]
     Active Substance: INFLIXIMAB
     Indication: Maternal exposure during breast feeding
     Dosage: UNK
     Route: 063
  5. ROTARIX [Concomitant]
     Active Substance: HUMAN ROTAVIRUS A TYPE G1P(8) STRAIN RIX4414 LIVE ANTIGEN
     Indication: Rotavirus immunisation
     Route: 065
  6. ROTATEQ [Concomitant]
     Active Substance: HUMAN ROTAVIRUS A TYPE G1P7(5) STRAIN WI79 LIVE ANTIGEN\HUMAN ROTAVIRUS A TYPE G2P7(5) STRAIN SC2 LI
     Indication: Rotavirus immunisation
     Route: 065

REACTIONS (22)
  - Neonatal respiratory distress syndrome [Unknown]
  - Jaundice neonatal [Unknown]
  - Transient tachypnoea of the newborn [Unknown]
  - Hyperbilirubinaemia [Unknown]
  - Adenovirus infection [Unknown]
  - Bronchiolitis [Unknown]
  - Norovirus infection [Unknown]
  - Ventricular septal defect [Unknown]
  - Hypogammaglobulinaemia [Unknown]
  - Colitis [Unknown]
  - Aorta hypoplasia [Unknown]
  - Infection [Unknown]
  - Neutropenia [Unknown]
  - Thrombocytosis [Unknown]
  - Atrial septal defect [Unknown]
  - Foetal heart rate abnormal [Unknown]
  - Foetal exposure during pregnancy [Unknown]
  - Premature baby [Unknown]
  - Exposure via breast milk [Unknown]
  - Eosinophilia [Unknown]
  - Low birth weight baby [Unknown]
  - Enterococcus test positive [Unknown]
